FAERS Safety Report 4848794-5 (Version None)
Quarter: 2005Q4

REPORT INFORMATION
  Report Type: 
  Country: None (occurrence: None)
  Receive Date: 20051206
  Receipt Date: 20051121
  Transmission Date: 20060501
  Serious: Yes (Other)
  Sender: FDA-Public Use
  Company Number: DE-2005-019945

PATIENT
  Sex: Male
  Weight: 68 kg

DRUGS (2)
  1. BETASERON [Suspect]
     Dosage: SEE IMAGE
     Route: 058
     Dates: start: 20050917, end: 20050917
  2. BETASERON [Suspect]
     Dosage: SEE IMAGE
     Route: 058
     Dates: start: 20050101

REACTIONS (9)
  - ABASIA [None]
  - APHASIA [None]
  - DYSPHAGIA [None]
  - EXCORIATION [None]
  - FALL [None]
  - HYPOREFLEXIA [None]
  - MUSCLE SPASTICITY [None]
  - PERIORBITAL HAEMATOMA [None]
  - SPEECH DISORDER [None]
